FAERS Safety Report 4752940-1 (Version None)
Quarter: 2005Q3

REPORT INFORMATION
  Report Type: 
  Country: None (occurrence: None)
  Receive Date: 20050823
  Receipt Date: 20050701
  Transmission Date: 20060218
  Serious: Yes (Other)
  Sender: FDA-Public Use
  Company Number: 19375

PATIENT
  Age: 80 Year
  Sex: Male

DRUGS (2)
  1. AMIODARONE HCL [Suspect]
     Indication: ATRIAL FIBRILLATION
     Dosage: 1MG/MINUTE/PERIPHERAL/IV
     Route: 042
     Dates: start: 20050605, end: 20050608
  2. HEPARIN [Concomitant]

REACTIONS (1)
  - PHLEBITIS [None]
